FAERS Safety Report 9303270 (Version 1)
Quarter: 2013Q2

REPORT INFORMATION
  Report Type: Spontaneous
  Country: US (occurrence: US)
  Receive Date: 20130522
  Receipt Date: 20130522
  Transmission Date: 20140414
  Serious: No
  Sender: FDA-Public Use
  Company Number: US-PFIZER INC-2013155794

PATIENT
  Age: 63 Year
  Sex: Female
  Weight: 78.9 kg

DRUGS (5)
  1. SUTENT [Suspect]
     Indication: RENAL CANCER
     Dosage: 50 MG, 1X/DAY
     Route: 048
     Dates: start: 201301, end: 201305
  2. SUTENT [Suspect]
     Dosage: 12.5 MG, 3X/DAY
     Route: 048
     Dates: start: 201305
  3. PRILOSEC [Concomitant]
     Indication: GASTRIC DISORDER
     Dosage: UNK
  4. SYNTHROID [Concomitant]
     Indication: THYROID DISORDER
     Dosage: 50 UG, UNK
  5. DIOVANE [Concomitant]
     Indication: HYPERTENSION
     Dosage: UNK

REACTIONS (6)
  - Blister [Unknown]
  - Blister [Unknown]
  - Diarrhoea [Unknown]
  - Alopecia [Unknown]
  - Alopecia [Unknown]
  - Full blood count decreased [Unknown]
